FAERS Safety Report 4557136-4 (Version None)
Quarter: 2005Q1

REPORT INFORMATION
  Report Type: 
  Country: None (occurrence: None)
  Receive Date: 20050119
  Receipt Date: 20050119
  Transmission Date: 20050727
  Serious: Yes (Life-Threatening, Hospitalization)
  Sender: FDA-Public Use
  Company Number: None

PATIENT
  Age: 50 Year
  Sex: Male
  Weight: 89.8122 kg

DRUGS (1)
  1. LIPITOR [Suspect]
     Indication: BLOOD CHOLESTEROL
     Dates: start: 20040601, end: 20040705

REACTIONS (14)
  - APHASIA [None]
  - ASTHENIA [None]
  - DERMATOMYOSITIS [None]
  - DIFFICULTY IN WALKING [None]
  - FATIGUE [None]
  - HYPOAESTHESIA [None]
  - MYALGIA [None]
  - ORAL INTAKE REDUCED [None]
  - PARAESTHESIA [None]
  - PRURITUS [None]
  - RASH ERYTHEMATOUS [None]
  - STOMATITIS [None]
  - TONGUE ULCERATION [None]
  - WEIGHT DECREASED [None]
